FAERS Safety Report 23506007 (Version 1)
Quarter: 2024Q1

REPORT INFORMATION
  Report Type: Spontaneous
  Country: CN (occurrence: None)
  Receive Date: 20240209
  Receipt Date: 20240209
  Transmission Date: 20240410
  Serious: Yes (Other)
  Sender: FDA-Public Use
  Company Number: 2024A018267

PATIENT
  Sex: Female

DRUGS (2)
  1. IMFINZI [Suspect]
     Active Substance: DURVALUMAB
     Indication: Small cell lung cancer
     Dosage: 3 VIALS TOTALLY 1500MG1500.0MG UNKNOWN
     Route: 041
     Dates: end: 20231104
  2. CATEQUENTINIB [Concomitant]
     Active Substance: CATEQUENTINIB

REACTIONS (2)
  - Metastasis [Unknown]
  - Hyperthyroidism [Recovering/Resolving]
